FAERS Safety Report 5677835-0 (Version None)
Quarter: 2008Q1

REPORT INFORMATION
  Report Type: 
  Country: None (occurrence: None)
  Receive Date: 20080318
  Receipt Date: 20080303
  Transmission Date: 20080703
  Serious: Yes (Death, Hospitalization)
  Sender: FDA-Public Use
  Company Number: WSDF_00708

PATIENT
  Sex: Male
  Weight: 99.3377 kg

DRUGS (2)
  1. WINRHO SDF [Suspect]
     Indication: THROMBOCYTOPENIA
     Dosage: 75 UG/KG ONCE IV
     Route: 042
     Dates: start: 20071231, end: 20071231
  2. DIPHENHYDRAMINE HCL [Concomitant]

REACTIONS (3)
  - DEPRESSED LEVEL OF CONSCIOUSNESS [None]
  - HAEMOLYSIS [None]
  - HEPATIC FAILURE [None]
